FAERS Safety Report 6282121-4 (Version None)
Quarter: 2009Q3

REPORT INFORMATION
  Report Type: 
  Country: None (occurrence: None)
  Receive Date: 20090724
  Receipt Date: 20070820
  Transmission Date: 20100115
  Serious: Yes (Other)
  Sender: FDA-Public Use
  Company Number: US-ASTRAZENECA-2007UW09592

PATIENT
  Age: 16812 Day
  Sex: Male

DRUGS (12)
  1. SEROQUEL [Suspect]
     Indication: BIPOLAR DISORDER
     Route: 048
     Dates: start: 20021201, end: 20030601
  2. SEROQUEL [Suspect]
     Dosage: 25-200 MG
     Route: 048
     Dates: start: 20030129
  3. RISPERDAL [Suspect]
     Indication: BIPOLAR DISORDER
     Dates: start: 19980101, end: 19980101
  4. ZYPREXA [Suspect]
     Indication: BIPOLAR DISORDER
     Dates: start: 20010101, end: 20021104
  5. TEMAZEPAM [Concomitant]
     Route: 048
  6. CLONAZEPAM [Concomitant]
     Dosage: 0.5-1 MG
     Route: 048
  7. NEURONTIN [Concomitant]
     Dosage: 300-1200 MG
     Route: 048
  8. RHINOCORT [Concomitant]
     Route: 045
  9. NORTRIPTYLINE HCL [Concomitant]
  10. ATENOLOL [Concomitant]
     Route: 048
  11. LIPITOR [Concomitant]
     Route: 048
  12. ZESTRIL [Concomitant]
     Route: 048

REACTIONS (3)
  - DIABETES MELLITUS [None]
  - DIABETIC KETOACIDOSIS [None]
  - DIABETIC NEUROPATHY [None]
